FAERS Safety Report 4532686-5 (Version None)
Quarter: 2004Q4

REPORT INFORMATION
  Report Type: 
  Country: None (occurrence: None)
  Receive Date: 20041221
  Receipt Date: 20041213
  Transmission Date: 20050328
  Serious: Yes (Hospitalization)
  Sender: FDA-Public Use
  Company Number: PHRM2004FR03670

PATIENT
  Age: 53 Year
  Sex: Female

DRUGS (12)
  1. ATHYMIL [Suspect]
     Dosage: 60 MG/DAY
     Route: 048
  2. URBANYL [Concomitant]
     Route: 048
  3. KEPPRA [Concomitant]
     Route: 048
  4. IMOVANE [Concomitant]
     Dosage: 7.5 MG, QD
     Route: 048
  5. RIFADIN [Concomitant]
     Dosage: 600 MG, BID
     Route: 048
     Dates: start: 20041104
  6. BACTRIM DS [Concomitant]
     Route: 042
     Dates: start: 20041104
  7. LOVENOX [Concomitant]
     Dates: start: 20041104
  8. TAZOCILLINE [Concomitant]
     Route: 042
     Dates: start: 20041101, end: 20041112
  9. CIPROFLOXACIN [Concomitant]
     Route: 065
     Dates: start: 20041101, end: 20041112
  10. ACETAMINOPHEN [Concomitant]
     Route: 042
     Dates: start: 20041101
  11. LIORESAL [Suspect]
     Dosage: 30 MG, TID
     Route: 048
     Dates: start: 20041104
  12. LIORESAL [Suspect]
     Dosage: 60 MG/DAY
     Route: 048
     Dates: end: 20041104

REACTIONS (5)
  - ARTHRITIS [None]
  - CONVULSION [None]
  - PNEUMONIA ASPIRATION [None]
  - SEPSIS [None]
  - SUBILEUS [None]
